FAERS Safety Report 5732831-X (Version None)
Quarter: 2008Q2

REPORT INFORMATION
  Report Type: 
  Country: None (occurrence: None)
  Receive Date: 20080507
  Receipt Date: 20080507
  Transmission Date: 20081010
  Serious: Yes (Other)
  Sender: FDA-Public Use
  Company Number: None

PATIENT
  Age: 98 Year
  Sex: Male
  Weight: 77.5651 kg

DRUGS (12)
  1. EXELON [Suspect]
     Indication: DEMENTIA
     Dosage: 1 PATCH 4.6 MG  DAILY   CUTANEOUS
     Route: 058
     Dates: start: 20080201, end: 20080327
  2. COUMADIN [Concomitant]
  3. DIGOXIN [Concomitant]
  4. TOPROL-XL [Concomitant]
  5. CAPTOPRIL [Concomitant]
  6. INSPRA [Concomitant]
  7. DEMADEX [Concomitant]
  8. IMDUR [Concomitant]
  9. GLUCOSAMINE [Concomitant]
  10. SYNTHROID [Concomitant]
  11. ALLOPURINOL [Concomitant]
  12. TYLENOL W/ CODEINE NO. 3 [Concomitant]

REACTIONS (1)
  - HICCUPS [None]
